FAERS Safety Report 4661180-6 (Version None)
Quarter: 2005Q2

REPORT INFORMATION
  Report Type: 
  Country: None (occurrence: None)
  Receive Date: 20050513
  Receipt Date: 20050429
  Transmission Date: 20051028
  Serious: Yes (Other)
  Sender: FDA-Public Use
  Company Number: GB-JNJFOC-20050407195

PATIENT
  Sex: Male
  Weight: 85 kg

DRUGS (5)
  1. REMICADE [Suspect]
     Indication: RHEUMATOID ARTHRITIS
     Route: 042
  2. PREDNISOLONE [Concomitant]
  3. METHOTREXATE [Concomitant]
  4. CALCICHEW [Concomitant]
  5. DICLOFENAC SODIUM [Concomitant]

REACTIONS (1)
  - LUNG CANCER METASTATIC [None]
